FAERS Safety Report 4336308-8 (Version None)
Quarter: 2004Q2

REPORT INFORMATION
  Report Type: 
  Country: None (occurrence: None)
  Receive Date: 20040407
  Receipt Date: 20040326
  Transmission Date: 20050107
  Serious: Yes (Death)
  Sender: FDA-Public Use
  Company Number: 04-00119(1)

PATIENT
  Age: 41 Year
  Sex: Male
  Weight: 96.6162 kg

DRUGS (4)
  1. KADIAN [Suspect]
  2. DIAZEPAM [Suspect]
  3. OXAZEPAM CAPSULES USP (PUREPAC) [Suspect]
  4. HYDROCODONE [Suspect]

REACTIONS (2)
  - DRUG TOXICITY [None]
  - OVERDOSE [None]
